FAERS Safety Report 4993255-6 (Version None)
Quarter: 2006Q1

REPORT INFORMATION
  Report Type: 
  Country: None (occurrence: None)
  Receive Date: 20060314
  Receipt Date: 20050401
  Transmission Date: 20060701
  Serious: Yes (Hospitalization)
  Sender: FDA-Public Use
  Company Number: 200511206BCC

PATIENT
  Age: 54 Year
  Sex: Male

DRUGS (3)
  1. ALEVE [Suspect]
     Indication: ARTHRITIS
     Dosage: 440 MG, ORAL
     Route: 048
     Dates: start: 20030501
  2. ALEVE [Suspect]
     Indication: BACK PAIN
     Dosage: 440 MG, ORAL
     Route: 048
     Dates: start: 20030501
  3. ASPIRIN [Suspect]
     Indication: PROPHYLAXIS
     Dosage: 81 MG, QD, ORAL
     Route: 048
     Dates: start: 20000101, end: 20050114

REACTIONS (2)
  - GASTRIC ULCER HAEMORRHAGE [None]
  - HAEMOGLOBIN DECREASED [None]
